FAERS Safety Report 6999771-X (Version None)
Quarter: 2010Q3

REPORT INFORMATION
  Report Type: 
  Country: None (occurrence: None)
  Receive Date: 20100920
  Receipt Date: 20100202
  Transmission Date: 20110219
  Serious: No
  Sender: FDA-Public Use
  Company Number: US-ASTRAZENECA-2010SE05232

PATIENT
  Age: 25423 Day
  Sex: Female
  Weight: 65.3 kg

DRUGS (5)
  1. SEROQUEL [Suspect]
     Indication: DEPRESSION
     Route: 048
     Dates: start: 20091201, end: 20100101
  2. PAXIL [Concomitant]
     Indication: DEPRESSION
  3. CARVEDILOL [Concomitant]
     Indication: CARDIAC DISORDER
  4. ASPIRIN [Concomitant]
     Indication: CARDIAC DISORDER
  5. SIMVASTATIN [Concomitant]
     Indication: BLOOD CHOLESTEROL INCREASED

REACTIONS (5)
  - DEMENTIA [None]
  - EATING DISORDER [None]
  - MEMORY IMPAIRMENT [None]
  - TONGUE BITING [None]
  - WEIGHT DECREASED [None]
